FAERS Safety Report 5260925-4 (Version None)
Quarter: 2007Q1

REPORT INFORMATION
  Report Type: 
  Country: None (occurrence: None)
  Receive Date: 20070309
  Receipt Date: 20070228
  Transmission Date: 20070707
  Serious: Yes (Hospitalization, Other)
  Sender: FDA-Public Use
  Company Number: HQWYE404115JAN07

PATIENT
  Sex: Male
  Weight: 60 kg

DRUGS (15)
  1. MYLOTARG [Suspect]
     Indication: ACUTE MYELOID LEUKAEMIA RECURRENT
     Route: 041
     Dates: start: 20060522, end: 20060522
  2. MYLOTARG [Suspect]
     Route: 041
     Dates: start: 20060811, end: 20060811
  3. ITRACONAZOLE [Concomitant]
     Indication: PROPHYLAXIS
     Route: 048
     Dates: start: 20060407
  4. GASTER [Concomitant]
     Indication: PROPHYLAXIS
     Route: 048
     Dates: start: 20060404
  5. MUCOSTA [Concomitant]
     Indication: PROPHYLAXIS
     Route: 048
     Dates: start: 20060404
  6. PREDONINE [Concomitant]
     Indication: PROPHYLAXIS
     Route: 048
     Dates: start: 20060404
  7. DECADRON [Concomitant]
     Indication: DRUG USE FOR UNKNOWN INDICATION
     Route: 041
     Dates: start: 20060507, end: 20060702
  8. ISODINE [Concomitant]
     Indication: PROPHYLAXIS
     Dosage: DOSE AND FREQUENCY NOT PROVIDED
     Dates: start: 20060404
  9. MYSER [Concomitant]
     Indication: PRURITUS
     Dosage: DOSE AND FREQUENCY NOT PROVIDED
     Route: 061
     Dates: start: 20060511, end: 20060720
  10. KERATINAMIN [Concomitant]
     Indication: DRY SKIN
     Dosage: DOSE AND FREQUENCY NOT PROVIDED
     Route: 061
     Dates: start: 20060511, end: 20060720
  11. RESTAMIN [Concomitant]
     Indication: DRY SKIN
     Dosage: DOSE AND FREQUENCY NOT PROVIDED
     Route: 061
     Dates: start: 20060511, end: 20060720
  12. MEROPEN [Concomitant]
     Indication: PROPHYLAXIS
     Route: 041
     Dates: start: 20060421, end: 20060706
  13. HUMULIN 70/30 [Concomitant]
     Indication: DIABETES MELLITUS
     Dosage: DOSE NOT PROVIDED, FREQUENCY REPORTED AS PER DAY
     Route: 058
     Dates: start: 20060427
  14. POLYMYXIN B SULFATE [Concomitant]
     Indication: PROPHYLAXIS
     Dosage: 3 MEGAIU EVERY 1 DAY
     Route: 048
     Dates: start: 20060407
  15. BAKTAR [Concomitant]
     Indication: PROPHYLAXIS
     Route: 048
     Dates: start: 20060423

REACTIONS (7)
  - DEPRESSION [None]
  - HAEMOGLOBIN DECREASED [None]
  - HEPATIC FUNCTION ABNORMAL [None]
  - INSOMNIA [None]
  - MEMORY IMPAIRMENT [None]
  - NEUTROPHIL COUNT DECREASED [None]
  - PLATELET COUNT DECREASED [None]
